FAERS Safety Report 10039200 (Version 1)
Quarter: 2014Q1

REPORT INFORMATION
  Report Type: Report from Study
  Country: US (occurrence: US)
  Receive Date: 20140326
  Receipt Date: 20140326
  Transmission Date: 20141002
  Serious: Yes (Hospitalization)
  Sender: FDA-Public Use
  Company Number: US-JNJFOC-20140311639

PATIENT
  Age: 15 Year
  Sex: Female
  Weight: 57.2 kg

DRUGS (6)
  1. REMICADE [Suspect]
     Indication: INFLAMMATORY BOWEL DISEASE
     Route: 042
     Dates: start: 20090902
  2. REMICADE [Suspect]
     Indication: INFLAMMATORY BOWEL DISEASE
     Route: 042
     Dates: start: 20130408, end: 20130409
  3. 6 MERCAPTOPURINE [Concomitant]
     Route: 065
  4. METHOTREXATE [Concomitant]
     Route: 065
  5. HUMIRA [Concomitant]
     Route: 065
     Dates: start: 20100311, end: 20130913
  6. CIMZIA [Concomitant]
     Route: 065
     Dates: start: 20130520, end: 20130520

REACTIONS (1)
  - Headache [Not Recovered/Not Resolved]
